FAERS Safety Report 10240203 (Version 1)
Quarter: 2014Q2

REPORT INFORMATION
  Report Type: Spontaneous
  Country: US (occurrence: US)
  Receive Date: 20140617
  Receipt Date: 20140617
  Transmission Date: 20141212
  Serious: Yes (Hospitalization)
  Sender: FDA-Public Use
  Company Number: US-BEH-2014043094

PATIENT
  Sex: Male
  Weight: 52 kg

DRUGS (1)
  1. PRIVIGEN [Suspect]
     Indication: IMMUNODEFICIENCY
     Route: 042

REACTIONS (2)
  - Convulsion [Unknown]
  - Sinusitis [Unknown]
